FAERS Safety Report 24776951 (Version 1)
Quarter: 2024Q4

REPORT INFORMATION
  Report Type: Spontaneous
  Country: US (occurrence: US)
  Receive Date: 20241226
  Receipt Date: 20241226
  Transmission Date: 20250115
  Serious: Yes (Life-Threatening, Hospitalization, Other)
  Sender: LUPIN
  Company Number: US-LUPIN PHARMACEUTICALS INC.-2024-12295

PATIENT
  Age: 24 Year
  Sex: Female

DRUGS (1)
  1. ESTRADIOL\NORETHINDRONE [Suspect]
     Active Substance: ESTRADIOL\NORETHINDRONE
     Indication: Menstruation irregular
     Dosage: UNK, 1 MG NORETHINDRONE ACETATE AND 20 MCG ETHINYL ESTRADIOL
     Route: 048

REACTIONS (3)
  - Coronary artery dissection [Recovered/Resolved]
  - Acute myocardial infarction [Recovered/Resolved]
  - Coronary artery occlusion [Recovered/Resolved]
